FAERS Safety Report 4946912-1 (Version None)
Quarter: 2006Q1

REPORT INFORMATION
  Report Type: 
  Country: None (occurrence: None)
  Receive Date: 20060317
  Receipt Date: 20060309
  Transmission Date: 20060701
  Serious: Yes (Other)
  Sender: FDA-Public Use
  Company Number: US-JNJFOC-20060106218

PATIENT
  Sex: Female

DRUGS (7)
  1. DURAGESIC-100 [Suspect]
     Route: 062
     Dates: start: 20030101
  2. TOPAMAX [Suspect]
     Route: 065
     Dates: start: 20030101, end: 20030101
  3. SYNTHROID [Concomitant]
  4. LISINOPRIL [Concomitant]
  5. TENORMIN [Concomitant]
  6. MEVACOR [Concomitant]
  7. PREMARIN [Concomitant]
     Indication: HORMONE REPLACEMENT THERAPY

REACTIONS (5)
  - CHILLS [None]
  - DRY MOUTH [None]
  - FATIGUE [None]
  - GASTROOESOPHAGEAL REFLUX DISEASE [None]
  - PANCREATIC CARCINOMA [None]
